FAERS Safety Report 7795353-0 (Version None)
Quarter: 2011Q4

REPORT INFORMATION
  Report Type: 
  Country: None (occurrence: None)
  Receive Date: 20111004
  Receipt Date: 20110923
  Transmission Date: 20120403
  Serious: Yes (Other)
  Sender: FDA-Public Use
  Company Number: BR-JNJFOC-20110910372

PATIENT
  Age: 56 Year
  Sex: Male

DRUGS (4)
  1. REMICADE [Suspect]
     Route: 042
     Dates: start: 20110725
  2. REMICADE [Suspect]
     Indication: PSORIATIC ARTHROPATHY
     Route: 042
     Dates: start: 20070911
  3. REMICADE [Suspect]
     Route: 042
     Dates: start: 20110920
  4. ALL OTHER THERAPEUTIC PRODUCTS [Concomitant]
     Route: 065

REACTIONS (5)
  - DYSPNOEA [None]
  - INFUSION RELATED REACTION [None]
  - ARTHRALGIA [None]
  - SUFFOCATION FEELING [None]
  - LOCAL SWELLING [None]
